FAERS Safety Report 4687391-1 (Version None)
Quarter: 2005Q2

REPORT INFORMATION
  Report Type: 
  Country: None (occurrence: None)
  Receive Date: 20050608
  Receipt Date: 20050527
  Transmission Date: 20051028
  Serious: Yes (Life-Threatening, Hospitalization, Other)
  Sender: FDA-Public Use
  Company Number: 2005072194

PATIENT
  Age: 88 Year
  Sex: Female

DRUGS (5)
  1. BEXTRA [Suspect]
     Indication: ARTHRITIS
     Dosage: 10 MG (10 MG, 1 IN 1 D), ORAL
     Route: 048
     Dates: start: 20040924, end: 20041102
  2. ALL OTHER THERAPEUTIC PRODUCTS (ALL OTHER THERAPEUTIC PRODUCTS) [Concomitant]
  3. VITAMINS (VITAMINS) [Concomitant]
  4. CALCIUM (CALICUM) [Concomitant]
  5. ACTONEL [Concomitant]

REACTIONS (5)
  - AORTIC STENOSIS [None]
  - IMPLANT SITE INFECTION [None]
  - MYOCARDIAL INFARCTION [None]
  - SICK SINUS SYNDROME [None]
  - WEIGHT DECREASED [None]
